FAERS Safety Report 13824884 (Version 5)
Quarter: 2018Q4

REPORT INFORMATION
  Report Type: Spontaneous
  Country: NO (occurrence: NO)
  Receive Date: 20170802
  Receipt Date: 20181226
  Transmission Date: 20190204
  Serious: Yes (Hospitalization, Other)
  Sender: FDA-Public Use
  Company Number: PHHY2017NO109822

PATIENT
  Age: 40 Year
  Sex: Male

DRUGS (27)
  1. ENBREL [Suspect]
     Active Substance: ETANERCEPT
     Dosage: INJETIONS AT INCREASING DOSES
     Route: 065
  2. NEURONTIN [Concomitant]
     Active Substance: GABAPENTIN
     Indication: MYALGIA
     Dosage: UNK
     Route: 065
  3. REMICADE [Suspect]
     Active Substance: INFLIXIMAB
     Dosage: DOSAGE FORM: LYOPHILIZED POWDER
     Route: 042
     Dates: start: 200903
  4. ENBREL [Suspect]
     Active Substance: ETANERCEPT
     Indication: PSORIASIS
     Dosage: DOSAGE FORM: UNSPECIFIED
     Route: 065
     Dates: start: 2005, end: 2009
  5. STELARA [Suspect]
     Active Substance: USTEKINUMAB
     Dosage: INCREASING DOSES FROM 45-90 MG, 1 ML EVERY 10TH WEEK
     Route: 058
  6. DAIVOBET [Concomitant]
     Active Substance: BETAMETHASONE DIPROPIONATE\CALCIPOTRIENE
     Indication: PSORIASIS
     Dosage: UNK
     Route: 065
  7. METHOTREXATE. [Suspect]
     Active Substance: METHOTREXATE
     Dosage: UNK
     Route: 065
     Dates: start: 200911, end: 201111
  8. REMICADE [Suspect]
     Active Substance: INFLIXIMAB
     Dosage: UNK
     Route: 042
  9. STELARA [Suspect]
     Active Substance: USTEKINUMAB
     Indication: PSORIASIS
     Dosage: 90 MG, CYCLIC 1ML EVERY 10TH WEEK
     Route: 058
     Dates: start: 2009
  10. SAROTEX [Concomitant]
     Active Substance: AMITRIPTYLINE HYDROCHLORIDE
     Indication: MYALGIA
     Dosage: UNK
     Route: 065
  11. REMICADE [Suspect]
     Active Substance: INFLIXIMAB
     Indication: PSORIASIS
     Dosage: DOSAGE FORM: LYOPHILIZED POWDER
     Route: 042
     Dates: start: 1999
  12. REMICADE [Suspect]
     Active Substance: INFLIXIMAB
     Dosage: DOSAGE FORM: LYOPHILIZED POWDER
     Route: 042
     Dates: start: 2003
  13. OXYCONTIN [Concomitant]
     Active Substance: OXYCODONE HYDROCHLORIDE
     Indication: ARTHRALGIA
     Dosage: UNK
     Route: 065
  14. FENTANYL. [Concomitant]
     Active Substance: FENTANYL
     Indication: ARTHRALGIA
     Dosage: UNK
     Route: 065
  15. SANDIMMUN [Suspect]
     Active Substance: CYCLOSPORINE
     Indication: PSORIASIS
     Dosage: DOSAGE FORM: UNSPECIFIED
     Route: 065
     Dates: start: 2001, end: 2001
  16. STELARA [Suspect]
     Active Substance: USTEKINUMAB
     Indication: PSORIASIS
     Dosage: 1 MG, QMO
     Route: 058
     Dates: start: 2010
  17. NEOTIGASON [Suspect]
     Active Substance: ACITRETIN
     Indication: PSORIASIS
     Dosage: DOSAGE FORM: UNSPECIFIED
     Route: 065
     Dates: start: 199902
  18. LYRICA [Concomitant]
     Active Substance: PREGABALIN
     Indication: MYALGIA
  19. OXYCONTIN [Concomitant]
     Active Substance: OXYCODONE HYDROCHLORIDE
     Indication: MYALGIA
     Dosage: UNK
     Route: 065
  20. FENTANYL. [Concomitant]
     Active Substance: FENTANYL
     Indication: MYALGIA
     Dosage: UNK
     Route: 065
  21. METHOTREXATE. [Suspect]
     Active Substance: METHOTREXATE
     Indication: PSORIASIS
     Dosage: DOSAGE FORM: UNSPECIFIED
     Route: 065
     Dates: start: 199802, end: 199809
  22. DIPROSALIC [Concomitant]
     Active Substance: BETAMETHASONE DIPROPIONATE
     Indication: PSORIASIS
     Dosage: UNK
     Route: 065
  23. NEURONTIN [Concomitant]
     Active Substance: GABAPENTIN
     Indication: ARTHRALGIA
     Dosage: UNK
     Route: 065
  24. LYRICA [Concomitant]
     Active Substance: PREGABALIN
     Indication: ARTHRALGIA
     Dosage: UNK
     Route: 065
  25. SAROTEX [Concomitant]
     Active Substance: AMITRIPTYLINE HYDROCHLORIDE
     Dosage: UNK (IN INCREASING DOSE)
     Route: 065
  26. ELOCON [Concomitant]
     Active Substance: MOMETASONE FUROATE
     Indication: PSORIASIS
     Dosage: UNK
     Route: 065
  27. SILKIS [Concomitant]
     Active Substance: CALCITRIOL
     Indication: PSORIASIS
     Dosage: UNK
     Route: 065

REACTIONS (11)
  - Psoriasis [Unknown]
  - Asthma [Unknown]
  - Sepsis [Unknown]
  - Ileus [Unknown]
  - Migraine [Unknown]
  - Rheumatoid arthritis [Unknown]
  - Osteonecrosis [Not Recovered/Not Resolved]
  - Drug effect decreased [Unknown]
  - Volvulus [Unknown]
  - Osteoarthritis [Unknown]
  - Bursitis [Unknown]

NARRATIVE: CASE EVENT DATE: 20160212
